FAERS Safety Report 5406087-1 (Version None)
Quarter: 2007Q3

REPORT INFORMATION
  Report Type: 
  Country: None (occurrence: None)
  Receive Date: 20070802
  Receipt Date: 20070802
  Transmission Date: 20080115
  Serious: Yes (Other)
  Sender: FDA-Public Use
  Company Number: None

PATIENT
  Sex: Male
  Weight: 88.3607 kg

DRUGS (1)
  1. PHENYTOIN SODIUM CAP [Suspect]

REACTIONS (1)
  - CONVULSION [None]
